FAERS Safety Report 17773463 (Version 21)
Quarter: 2021Q4

REPORT INFORMATION
  Report Type: Report from Study
  Country: CA (occurrence: CA)
  Receive Date: 20200512
  Receipt Date: 20211109
  Transmission Date: 20220303
  Serious: Yes (Hospitalization, Other)
  Sender: FDA-Public Use
  Company Number: PHHY2012CA102272

PATIENT
  Age: 69 Year
  Sex: Male

DRUGS (15)
  1. SANDOSTATIN LAR DEPOT [Suspect]
     Active Substance: OCTREOTIDE ACETATE
     Indication: Medullary thyroid cancer
     Dosage: 30 MG, Q4W
     Route: 030
     Dates: start: 20120421
  2. SANDOSTATIN LAR DEPOT [Suspect]
     Active Substance: OCTREOTIDE ACETATE
     Indication: Neuroendocrine tumour
  3. SANDOSTATIN LAR DEPOT [Suspect]
     Active Substance: OCTREOTIDE ACETATE
  4. SANDOSTATIN [Suspect]
     Active Substance: OCTREOTIDE ACETATE
     Indication: Medullary thyroid cancer
     Dosage: UNK (UG ONCE/SINGLE)
     Route: 058
     Dates: start: 20120416, end: 20120416
  5. SANDOSTATIN [Suspect]
     Active Substance: OCTREOTIDE ACETATE
     Indication: Neuroendocrine tumour
     Dosage: UNK (UG ONCE/SINGLE)
     Route: 058
     Dates: start: 20120416
  6. SANDOSTATIN [Suspect]
     Active Substance: OCTREOTIDE ACETATE
  7. DOCETAXEL [Suspect]
     Active Substance: DOCETAXEL
     Indication: Chemotherapy
     Dosage: UNK UNK, Q3W
     Route: 042
     Dates: start: 202106
  8. XGEVA [Suspect]
     Active Substance: DENOSUMAB
     Indication: Product used for unknown indication
     Dosage: 120 MG, Q4W
     Route: 058
  9. CHLOROTHIAZIDE [Concomitant]
     Active Substance: CHLOROTHIAZIDE
     Indication: Product used for unknown indication
     Dosage: 25 MG (DAILY)
     Route: 065
     Dates: start: 20210212
  10. OXYGEN [Concomitant]
     Active Substance: OXYGEN
     Indication: Product used for unknown indication
     Dosage: UNK (NOW ON 2.5L OXYGEN FROM 6L)
     Route: 065
  11. PREGABALIN [Concomitant]
     Active Substance: PREGABALIN
     Indication: Neuralgia
     Dosage: 25 MG, BID
     Route: 065
  12. DILAUDID [Concomitant]
     Active Substance: HYDROMORPHONE HYDROCHLORIDE
     Indication: Product used for unknown indication
     Dosage: 3 MG, BID
     Route: 065
  13. DILAUDID [Concomitant]
     Active Substance: HYDROMORPHONE HYDROCHLORIDE
     Dosage: 1 MG, PRN
     Route: 065
  14. LEVOTHYROXINE [Concomitant]
     Active Substance: LEVOTHYROXINE
     Indication: Product used for unknown indication
     Dosage: 0.15 MG
     Route: 065
  15. DEXAMETHASONE [Concomitant]
     Active Substance: DEXAMETHASONE
     Indication: Product used for unknown indication
     Dosage: 4 MG, BID (4MG BID X 10DAYS)
     Route: 065

REACTIONS (27)
  - Pneumonia [Unknown]
  - Blood pressure increased [Unknown]
  - Non-small cell lung cancer [Unknown]
  - Second primary malignancy [Unknown]
  - Metastases to lung [Not Recovered/Not Resolved]
  - Metastases to skin [Unknown]
  - Malignant neoplasm progression [Unknown]
  - Blood pressure diastolic decreased [Unknown]
  - Hypoaesthesia [Unknown]
  - Scab [Unknown]
  - Hepatic lesion [Unknown]
  - Pruritus [Unknown]
  - Pain in extremity [Unknown]
  - Rash [Unknown]
  - Fatigue [Unknown]
  - Joint swelling [Unknown]
  - Peripheral swelling [Unknown]
  - Decreased appetite [Unknown]
  - Asthenia [Unknown]
  - Ageusia [Unknown]
  - Eating disorder [Unknown]
  - Pleural effusion [Unknown]
  - Pain [Unknown]
  - Diarrhoea [Unknown]
  - Arthralgia [Unknown]
  - Drug ineffective [Unknown]
  - Product use in unapproved indication [Unknown]

NARRATIVE: CASE EVENT DATE: 20121031
